FAERS Safety Report 16611931 (Version 1)
Quarter: 2019Q3

REPORT INFORMATION
  Report Type: Spontaneous
  Country: US (occurrence: US)
  Receive Date: 20190722
  Receipt Date: 20190722
  Transmission Date: 20191004
  Serious: No
  Sender: FDA-Public Use
  Company Number: US-MYLANLABS-2019M1065444

PATIENT
  Sex: Female
  Weight: 71 kg

DRUGS (1)
  1. LEVOTHYROXINE SODIUM TABLETS, USP [Suspect]
     Active Substance: LEVOTHYROXINE SODIUM
     Indication: HYPOTHYROIDISM
     Dosage: 50 MICROGRAM
     Route: 048
     Dates: start: 2019, end: 20190622

REACTIONS (7)
  - Lethargy [Unknown]
  - Blood thyroid stimulating hormone abnormal [Unknown]
  - Back pain [Unknown]
  - Alopecia [Unknown]
  - Palpitations [Recovered/Resolved]
  - Chest pain [Unknown]
  - Drug ineffective [Unknown]

NARRATIVE: CASE EVENT DATE: 2019
